FAERS Safety Report 20750295 (Version 2)
Quarter: 2022Q2

REPORT INFORMATION
  Report Type: Spontaneous
  Country: GB (occurrence: GB)
  Receive Date: 20220426
  Receipt Date: 20220516
  Transmission Date: 20220721
  Serious: Yes (Hospitalization, Other)
  Sender: FDA-Public Use
  Company Number: GB-MYLANLABS-2020M1060756

PATIENT
  Sex: Male

DRUGS (46)
  1. EFAVIRENZ [Suspect]
     Active Substance: EFAVIRENZ
     Indication: Product used for unknown indication
     Dosage: QD (STRENGTH 600)
     Route: 065
  2. EFAVIRENZ [Suspect]
     Active Substance: EFAVIRENZ
     Dosage: UNK, ONCE A DAY
     Route: 065
  3. EFAVIRENZ [Suspect]
     Active Substance: EFAVIRENZ
     Dosage: 600 MILLIGRAM, QD(600 MILLIGRAM, QD, (600 MG, 1D,UNK UNK, 1D,600)
     Route: 065
  4. EFAVIRENZ [Suspect]
     Active Substance: EFAVIRENZ
     Dosage: 1 DOSAGE FORM, ONCE A DAY
     Route: 065
  5. EFAVIRENZ [Suspect]
     Active Substance: EFAVIRENZ
  6. EFAVIRENZ [Suspect]
     Active Substance: EFAVIRENZ
  7. EFAVIRENZ [Suspect]
     Active Substance: EFAVIRENZ
     Dosage: 1 DOSAGE FORM, ONCE A DAY(1 DOSAGE FORM, QD (STRENGTH 600))
  8. EFAVIRENZ [Suspect]
     Active Substance: EFAVIRENZ
     Dosage: 600 MILLIGRAM, ONCE A DAY
  9. EFAVIRENZ [Suspect]
     Active Substance: EFAVIRENZ
     Dosage: 100 MILLIGRAM, ONCE A DAY(100 MG, QD )
  10. EFAVIRENZ [Suspect]
     Active Substance: EFAVIRENZ
     Dosage: 300 MILLIGRAM, ONCE A DAY (STRENGTH 300, OD)
  11. EFAVIRENZ [Suspect]
     Active Substance: EFAVIRENZ
     Dosage: 1 DOSAGE FORM, ONCE A DAY ((STRENGTH 300, OD) )
  12. LAMIVUDINE [Suspect]
     Active Substance: LAMIVUDINE
     Indication: Product used for unknown indication
     Dosage: 600 MILLIGRAM, QD
     Route: 065
  13. LAMIVUDINE [Suspect]
     Active Substance: LAMIVUDINE
     Dosage: 300 MILLIGRAM, QD
     Route: 065
  14. LAMIVUDINE [Suspect]
     Active Substance: LAMIVUDINE
     Dosage: 100 MILLIGRAM, QD, (STRENGTH 100, OD)
     Route: 065
  15. LAMIVUDINE [Suspect]
     Active Substance: LAMIVUDINE
     Dosage: UNK, QD (STRENGTH 100 OD)
     Route: 065
  16. LAMIVUDINE [Suspect]
     Active Substance: LAMIVUDINE
     Dosage: UNK, ONCE A DAY (STRENGTH 100 OD)
     Route: 065
  17. LAMIVUDINE [Suspect]
     Active Substance: LAMIVUDINE
     Dosage: 300 MILLIGRAM, ONCE A DAY
     Route: 065
  18. LAMIVUDINE [Suspect]
     Active Substance: LAMIVUDINE
     Dosage: 600 MILLIGRAM, ONCE A DAY
     Route: 065
  19. LAMIVUDINE [Suspect]
     Active Substance: LAMIVUDINE
     Dosage: 300 MILLIGRAM, ONCE A DAY(STRENGTH 300, OD 1 1 D 300MG) )
     Route: 065
  20. LAMIVUDINE [Suspect]
     Active Substance: LAMIVUDINE
     Dosage: 100 MILLIGRAM, ONCE A DAY
     Route: 065
  21. ABACAVIR SULFATE [Suspect]
     Active Substance: ABACAVIR SULFATE
     Indication: Product used for unknown indication
     Dosage: 1 DOSAGE FORM, QD (STRENGTH 300, OD)
     Route: 065
  22. ABACAVIR SULFATE [Suspect]
     Active Substance: ABACAVIR SULFATE
     Dosage: 600 MILLIGRAM, QD
     Route: 065
  23. ABACAVIR SULFATE [Suspect]
     Active Substance: ABACAVIR SULFATE
     Dosage: 600 MILLIGRAM, QD
     Route: 065
  24. ABACAVIR SULFATE [Suspect]
     Active Substance: ABACAVIR SULFATE
     Dosage: (UNK UNK, QD, 300, OD)
     Route: 065
  25. ABACAVIR SULFATE [Suspect]
     Active Substance: ABACAVIR SULFATE
     Dosage: 300 MILLIGRAM, QD ( QD (1D, 300))
     Route: 065
  26. ABACAVIR [Suspect]
     Active Substance: ABACAVIR
     Indication: Product used for unknown indication
     Dosage: 300 MILLIGRAM, QD, (300 MG, 1D)
     Route: 065
  27. ABACAVIR [Suspect]
     Active Substance: ABACAVIR
     Dosage: 300 MILLIGRAM, QD,  (STRENGTH 300, OD)
     Route: 065
  28. ABACAVIR [Suspect]
     Active Substance: ABACAVIR
     Dosage: 600 MG, QD (600 MILLIGRAM, ONCE A DAY91D,600 CAPSULE)
     Route: 065
  29. ABACAVIR [Suspect]
     Active Substance: ABACAVIR
     Dosage: UNK
     Route: 065
  30. ABACAVIR [Suspect]
     Active Substance: ABACAVIR
     Dosage: 1 DOSAGE FORM, QD, ONCE A DAY (STRENGTH 300, OD)
     Route: 065
  31. ABACAVIR [Suspect]
     Active Substance: ABACAVIR
     Dosage: 600 MILLIGRAM, ONCE A DAY91D,600 CAPSULE)
     Route: 065
  32. ABACAVIR [Suspect]
     Active Substance: ABACAVIR
     Dosage: 300 MILLIGRAM, ONCE A DAY
  33. ABACAVIR [Suspect]
     Active Substance: ABACAVIR
     Dosage: 600 MILLIGRAM, ONCE A DAY (600 MILLIGRAM, QD)
  34. ABACAVIR [Suspect]
     Active Substance: ABACAVIR
     Dosage: 1 DOSAGE FORM, ONCE A DAY (STRENGTH 300, OD)
  35. ABACAVIR [Suspect]
     Active Substance: ABACAVIR
     Dosage: 300 MILLIGRAM, ONCE A DAY
  36. ABACAVIR [Suspect]
     Active Substance: ABACAVIR
     Dosage: 600 MILLIGRAM, ONCE A DAY
  37. LAMIVUDINE [Suspect]
     Active Substance: LAMIVUDINE
     Indication: Product used for unknown indication
     Dosage: 100 MILLIGRAM, QD, (100 MG, QD)
     Route: 065
  38. LAMIVUDINE [Suspect]
     Active Substance: LAMIVUDINE
     Dosage: 300 MILLIGRAM, QD, (300 MG, QD)
     Route: 065
  39. LAMIVUDINE [Suspect]
     Active Substance: LAMIVUDINE
     Dosage: 300 MILLIGRAM, QD, (300 MG, QD
     Route: 065
  40. LAMIVUDINE [Suspect]
     Active Substance: LAMIVUDINE
     Dosage: NK UNK, QD, 100 OD
     Route: 065
  41. LAMIVUDINE [Suspect]
     Active Substance: LAMIVUDINE
     Dosage: 300 MILLIGRAM, QD, (STRENGTH 300, OD 1 1 D 300MG
     Route: 065
  42. LAMIVUDINE [Suspect]
     Active Substance: LAMIVUDINE
     Dosage: 100 MILLIGRAM, QD, (100 MG, 1D, 100 MG, QD (STRENGTH 100, OD)
     Route: 065
  43. LAMIVUDINE [Suspect]
     Active Substance: LAMIVUDINE
     Dosage: UNK, QD, (UNK UNK, QD, 100 OD
     Route: 065
  44. LAMIVUDINE [Suspect]
     Active Substance: LAMIVUDINE
     Dosage: 100 MILLIGRAM, QD, (1D,100)
     Route: 065
  45. LAMIVUDINE [Suspect]
     Active Substance: LAMIVUDINE
     Dosage: 300 MILLIGRAM, QD
     Route: 065
  46. LAMIVUDINE [Suspect]
     Active Substance: LAMIVUDINE
     Dosage: 25 MG TAKEN IN SEQUENCES OF 4X3 WEEKS
     Route: 065

REACTIONS (6)
  - Lung neoplasm malignant [Unknown]
  - Life expectancy shortened [Not Recovered/Not Resolved]
  - Malaise [Unknown]
  - Lung cancer metastatic [Unknown]
  - Feeling abnormal [Unknown]
  - Metastases to central nervous system [Unknown]
